FAERS Safety Report 7327895-6 (Version None)
Quarter: 2011Q1

REPORT INFORMATION
  Report Type: 
  Country: None (occurrence: None)
  Receive Date: 20110218
  Receipt Date: 20110203
  Transmission Date: 20110831
  Serious: Yes (Hospitalization)
  Sender: FDA-Public Use
  Company Number: 007129

PATIENT
  Sex: Male

DRUGS (8)
  1. IMURAN [Concomitant]
  2. OMEPRAZOLE [Concomitant]
  3. CIMZIA [Suspect]
     Indication: CROHN'S DISEASE
     Dosage: (SUBCUTANEOUS)
     Route: 058
     Dates: start: 20090610
  4. REGLAN /0041902/ [Concomitant]
  5. FENTANYL [Concomitant]
  6. OXYCODONE [Concomitant]
  7. ENTOCORT EC [Concomitant]
  8. CITALOPRAM HYDROBROMIDE [Concomitant]

REACTIONS (5)
  - GASTRIC ULCER HAEMORRHAGE [None]
  - GASTROINTESTINAL HYPOMOTILITY [None]
  - INTERNATIONAL NORMALISED RATIO INCREASED [None]
  - FATIGUE [None]
  - PULMONARY EMBOLISM [None]
